FAERS Safety Report 23041873 (Version 1)
Quarter: 2023Q4

REPORT INFORMATION
  Report Type: Spontaneous
  Country: US (occurrence: US)
  Receive Date: 20231007
  Receipt Date: 20231007
  Transmission Date: 20240110
  Serious: Yes (Hospitalization, Other)
  Sender: FDA-Public Use
  Company Number: US-MLMSERVICE-20230822-4500032-1

PATIENT
  Sex: Male

DRUGS (5)
  1. TRIAMCINOLONE ACETONIDE [Suspect]
     Active Substance: TRIAMCINOLONE ACETONIDE
     Indication: Cystoid macular oedema
     Dosage: 3 DOSES OF SUBTENON TRIAMCINOLONE IN BOTH EYES OVER THE COURSE OF 8 MONTHS.
     Route: 065
  2. TRIAMCINOLONE ACETONIDE [Suspect]
     Active Substance: TRIAMCINOLONE ACETONIDE
     Dosage: UNK 3 DOSES OF 40MG (STRENGTH)
  3. AMIODARONE HYDROCHLORIDE [Suspect]
     Active Substance: AMIODARONE HYDROCHLORIDE
     Indication: Product used for unknown indication
     Route: 065
  4. DARUNAVIR [Suspect]
     Active Substance: DARUNAVIR
     Indication: HIV infection
     Route: 065
  5. RITONAVIR [Suspect]
     Active Substance: RITONAVIR
     Indication: HIV infection
     Route: 065

REACTIONS (9)
  - Drug interaction [Recovering/Resolving]
  - Exercise tolerance decreased [Recovering/Resolving]
  - Confusional state [Recovering/Resolving]
  - Contusion [Recovering/Resolving]
  - Adrenal insufficiency [Recovering/Resolving]
  - Pseudo Cushing^s syndrome [Recovering/Resolving]
  - Dyspnoea exertional [Recovering/Resolving]
  - Muscular weakness [Recovering/Resolving]
  - Muscle atrophy [Recovering/Resolving]
